FAERS Safety Report 4775468-1 (Version None)
Quarter: 2005Q3

REPORT INFORMATION
  Report Type: 
  Country: None (occurrence: None)
  Receive Date: 20050922
  Receipt Date: 20050909
  Transmission Date: 20060218
  Serious: Yes (Hospitalization)
  Sender: FDA-Public Use
  Company Number: DE-NOVOPROD-246778

PATIENT
  Age: 57 Year
  Sex: Female

DRUGS (3)
  1. ACTIVELLE [Suspect]
     Indication: HORMONE REPLACEMENT THERAPY
     Dates: start: 20040201, end: 20050401
  2. ANTIHYPERTENSIVES [Concomitant]
  3. EUTHYROX [Concomitant]

REACTIONS (5)
  - ACUTE MYOCARDIAL INFARCTION [None]
  - ATRIOVENTRICULAR BLOCK [None]
  - CORONARY ARTERY DISEASE [None]
  - MITRAL VALVE INCOMPETENCE [None]
  - VENTRICULAR HYPERTROPHY [None]
